FAERS Safety Report 4445039-5 (Version None)
Quarter: 2004Q3

REPORT INFORMATION
  Report Type: 
  Country: None (occurrence: None)
  Receive Date: 20040907
  Receipt Date: 20040827
  Transmission Date: 20050211
  Serious: No
  Sender: FDA-Public Use
  Company Number: 2004227331DE

PATIENT
  Age: 50 Year
  Weight: 89 kg

DRUGS (1)
  1. BEXTRA [Suspect]
     Indication: OSTEOARTHRITIS
     Dosage: 20 MG, QD, ORAL
     Route: 048
     Dates: start: 20040602

REACTIONS (1)
  - NO ADVERSE DRUG EFFECT [None]
